FAERS Safety Report 5790829-X (Version None)
Quarter: 2008Q2

REPORT INFORMATION
  Report Type: 
  Country: None (occurrence: None)
  Receive Date: 20080626
  Receipt Date: 20080507
  Transmission Date: 20081010
  Serious: No
  Sender: FDA-Public Use
  Company Number: A0726698A

PATIENT
  Sex: Female

DRUGS (1)
  1. ALLI [Suspect]
     Dates: start: 20080506

REACTIONS (1)
  - THIRST [None]
